FAERS Safety Report 8437868 (Version 6)
Quarter: 2012Q4

REPORT INFORMATION
  Report Type: Report from Study
  Country: KR (occurrence: KR)
  Receive Date: 20120302
  Receipt Date: 20121203
  Transmission Date: 20130627
  Serious: Yes (Hospitalization, Other)
  Sender: FDA-Public Use
  Company Number: KR-ROCHE-1039711

PATIENT
  Age: 62 Year
  Sex: Female
  Weight: 48.7 kg

DRUGS (18)
  1. BEVACIZUMAB [Suspect]
     Indication: GASTRIC CANCER
     Dosage: last dose prior to SAE on 13/Apr/2012
     Route: 042
     Dates: start: 20120114
  2. CAPECITABINE [Suspect]
     Indication: GASTRIC CANCER
     Route: 048
     Dates: start: 20120114, end: 20120210
  3. CAPECITABINE [Suspect]
     Route: 048
     Dates: start: 20120203, end: 20120217
  4. CAPECITABINE [Suspect]
     Dosage: 25% dose reduction
     Route: 048
     Dates: start: 20120323, end: 20120331
  5. CAPECITABINE [Suspect]
     Dosage: Dose reduction of 50%., last dose prior to SAE on 13/Apr/2012
     Route: 048
     Dates: start: 20120413, end: 20120419
  6. DOCETAXEL [Suspect]
     Indication: GASTRIC CANCER
     Dosage: 90 mg on cycle 1 and 2
     Route: 042
     Dates: start: 20120114
  7. DOCETAXEL [Suspect]
     Dosage: Dose reduction of 25%
     Route: 042
     Dates: start: 20120323
  8. DOCETAXEL [Suspect]
     Dosage: 4 th cycle, last dose prior to SAE on 13/Apr/2012
     Route: 065
     Dates: start: 20120413
  9. CISPLATIN [Suspect]
     Indication: GASTRIC CANCER
     Dosage: last dose prior to SAE on 13/Apr/2012
     Route: 042
     Dates: start: 20120114
  10. PIOGLITAZONE [Concomitant]
     Route: 065
     Dates: start: 20020510
  11. ARTEMISIA ASIATICA [Concomitant]
     Route: 065
     Dates: start: 20120125
  12. THIOCTIC ACID [Concomitant]
     Route: 065
     Dates: start: 20020510
  13. GLIMEPIRIDE [Concomitant]
     Route: 065
     Dates: start: 20020510
  14. METFORMIN [Concomitant]
     Route: 065
     Dates: start: 20020510
  15. ATORVASTATIN [Concomitant]
     Route: 065
     Dates: start: 20020510
  16. MEGESTROL ACETATE [Concomitant]
     Route: 065
     Dates: start: 20120114
  17. METOCLOPRAMIDE/PANCREATIN [Concomitant]
     Route: 065
     Dates: start: 20120106
  18. SUCRALFATE [Concomitant]
     Route: 065
     Dates: start: 20120125

REACTIONS (4)
  - Febrile neutropenia [Recovered/Resolved]
  - Gastrointestinal perforation [Not Recovered/Not Resolved]
  - Enteritis [Recovered/Resolved]
  - Febrile neutropenia [Recovered/Resolved]
